FAERS Safety Report 7488658-4 (Version None)
Quarter: 2011Q2

REPORT INFORMATION
  Report Type: 
  Country: None (occurrence: None)
  Receive Date: 20110518
  Receipt Date: 20110510
  Transmission Date: 20111010
  Serious: Yes (Death)
  Sender: FDA-Public Use
  Company Number: A0926792A

PATIENT
  Age: 66 Year
  Sex: Male

DRUGS (2)
  1. UNKNOWN [Concomitant]
  2. ARIXTRA [Suspect]

REACTIONS (1)
  - PANCREATIC CARCINOMA [None]
